FAERS Safety Report 24338767 (Version 6)
Quarter: 2025Q1

REPORT INFORMATION
  Report Type: Spontaneous
  Country: US (occurrence: US)
  Receive Date: 20240919
  Receipt Date: 20250113
  Transmission Date: 20250409
  Serious: Yes (Other)
  Sender: PFIZER
  Company Number: US-PFIZER INC-PV202400120622

PATIENT
  Age: 70 Year
  Sex: Female
  Weight: 65.77 kg

DRUGS (3)
  1. ESTRING [Suspect]
     Active Substance: ESTRADIOL
     Indication: Menopausal symptoms
     Dosage: 7.5 UG, EVERY THREE MONTHS
     Route: 067
     Dates: start: 2022, end: 20240904
  2. SYNTHROID [Concomitant]
     Active Substance: LEVOTHYROXINE SODIUM
     Indication: Hypothyroidism
     Dosage: 150 MCG, 1X A DAY
  3. LEVOTHYROXINE [Concomitant]
     Active Substance: LEVOTHYROXINE

REACTIONS (4)
  - Vaginal infection [Recovered/Resolved]
  - Vaginal lesion [Recovered/Resolved]
  - Vaginal haemorrhage [Recovered/Resolved]
  - Desquamative inflammatory vaginitis [Recovered/Resolved]

NARRATIVE: CASE EVENT DATE: 20231211
